FAERS Safety Report 6945935-0 (Version None)
Quarter: 2010Q3

REPORT INFORMATION
  Report Type: 
  Country: None (occurrence: None)
  Receive Date: 20100827
  Receipt Date: 20100817
  Transmission Date: 20110219
  Serious: Yes (Hospitalization)
  Sender: FDA-Public Use
  Company Number: US-GENZYME-MOZO-1000373

PATIENT
  Sex: Female
  Weight: 78.5 kg

DRUGS (15)
  1. MOZOBIL [Suspect]
     Indication: HAEMATOPOIETIC STEM CELL MOBILISATION
     Dosage: 420 MCG/KG, QOD
     Route: 042
     Dates: start: 20100721, end: 20100725
  2. MOZOBIL [Suspect]
     Indication: CHRONIC LYMPHOCYTIC LEUKAEMIA
  3. RITUXIMAB [Concomitant]
     Indication: CHRONIC LYMPHOCYTIC LEUKAEMIA
     Dosage: 375 MG/M2, QD
     Route: 042
     Dates: start: 20100714, end: 20100720
  4. RITUXIMAB [Concomitant]
     Dosage: 375 MG/M2, QOD
     Route: 042
     Dates: start: 20100721, end: 20100725
  5. ALLOPURINOL [Concomitant]
     Indication: TUMOUR LYSIS SYNDROME
     Dosage: 300 MG, QD
     Dates: start: 20100713, end: 20100729
  6. PROZAC [Concomitant]
     Indication: DEPRESSION
     Dosage: 80 MG, QD
     Route: 048
     Dates: start: 20070101
  7. FOLIC ACID [Concomitant]
     Indication: PRODUCT USED FOR UNKNOWN INDICATION
     Dosage: 1 MG, QD
     Route: 048
  8. ATIVAN [Concomitant]
     Indication: PRODUCT USED FOR UNKNOWN INDICATION
     Dosage: UNK
  9. AMBIEN [Concomitant]
     Indication: INSOMNIA
     Dosage: 10 MG, PRN
     Route: 048
     Dates: start: 20080613
  10. MULTI-VITAMIN [Concomitant]
     Indication: PRODUCT USED FOR UNKNOWN INDICATION
     Dosage: 1 DF, QD
     Route: 048
  11. VIACTIV [Concomitant]
     Indication: PRODUCT USED FOR UNKNOWN INDICATION
     Dosage: UNK
  12. MEPRON [Suspect]
     Indication: PROPHYLAXIS
     Dosage: 150 MG/ML, UNK
     Dates: end: 20100730
  13. FAMVIR [Concomitant]
     Indication: PROPHYLAXIS
     Dosage: 500 MG, BID
     Dates: start: 20091124
  14. ACETAMINOPHEN [Concomitant]
     Indication: PREMEDICATION
     Dosage: 650 MG, UNK
     Route: 048
     Dates: start: 20100714, end: 20100723
  15. DIPHENHYDRAMINE [Concomitant]
     Indication: PREMEDICATION
     Dosage: 25 MG, UNK
     Route: 042
     Dates: start: 20100714, end: 20100723

REACTIONS (13)
  - BACK PAIN [None]
  - BLOOD TEST ABNORMAL [None]
  - CHEST DISCOMFORT [None]
  - DEHYDRATION [None]
  - DIARRHOEA [None]
  - GASTROENTERITIS [None]
  - HEADACHE [None]
  - HYPOKALAEMIA [None]
  - LEUKOCYTOSIS [None]
  - NAUSEA [None]
  - RETCHING [None]
  - URINARY TRACT INFECTION [None]
  - VOMITING [None]
